FAERS Safety Report 6117977-9 (Version None)
Quarter: 2009Q1

REPORT INFORMATION
  Report Type: 
  Country: None (occurrence: None)
  Receive Date: 20090314
  Receipt Date: 20090203
  Transmission Date: 20090719
  Serious: No
  Sender: FDA-Public Use
  Company Number: US-ABBOTT-09P-163-0501814-00

PATIENT
  Sex: Female
  Weight: 113.5 kg

DRUGS (1)
  1. HUMIRA [Suspect]
     Indication: HIDRADENITIS
     Route: 058
     Dates: start: 20090123

REACTIONS (5)
  - CHEST PAIN [None]
  - DIARRHOEA [None]
  - HEADACHE [None]
  - PRURITUS GENERALISED [None]
  - RASH [None]
